FAERS Safety Report 8507679-3 (Version None)
Quarter: 2012Q3

REPORT INFORMATION
  Report Type: 
  Country: None (occurrence: None)
  Receive Date: 20120713
  Receipt Date: 20120709
  Transmission Date: 20120928
  Serious: Yes (Other)
  Sender: FDA-Public Use
  Company Number: US-009507513-1206USA01887

PATIENT

DRUGS (1)
  1. COSOPT [Suspect]
     Indication: GLAUCOMA
     Dosage: 2 GTT, BID
     Route: 047
     Dates: start: 20100101

REACTIONS (2)
  - ADVERSE EVENT [None]
  - VISION BLURRED [None]
